FAERS Safety Report 12544557 (Version 2)
Quarter: 2016Q3

REPORT INFORMATION
  Report Type: Spontaneous
  Country: US (occurrence: US)
  Receive Date: 20160711
  Receipt Date: 20160902
  Transmission Date: 20161109
  Serious: Yes (Other)
  Sender: FDA-Public Use
  Company Number: US-TEVA-673782USA

PATIENT
  Age: 5 Year
  Sex: Female

DRUGS (1)
  1. AMOXICILLIN. [Suspect]
     Active Substance: AMOXICILLIN
     Indication: EAR INFECTION
     Dosage: 400 MG/5 ML
     Route: 048
     Dates: start: 20160629, end: 20160629

REACTIONS (9)
  - Multi-organ disorder [Unknown]
  - Gastrointestinal disorder [Unknown]
  - Gastric disorder [Unknown]
  - Pharyngeal erythema [Not Recovered/Not Resolved]
  - Vomiting [Unknown]
  - Product taste abnormal [Unknown]
  - Pharyngeal disorder [Unknown]
  - Oropharyngeal pain [Not Recovered/Not Resolved]
  - Crying [Not Recovered/Not Resolved]

NARRATIVE: CASE EVENT DATE: 20160629
